FAERS Safety Report 17995385 (Version 2)
Quarter: 2020Q3

REPORT INFORMATION
  Report Type: Spontaneous
  Country: US (occurrence: US)
  Receive Date: 20200708
  Receipt Date: 20200721
  Transmission Date: 20201103
  Serious: Yes (Death)
  Sender: FDA-Public Use
  Company Number: US-ROCHE-2638125

PATIENT
  Age: 11 Year
  Sex: Male

DRUGS (3)
  1. XELODA [Concomitant]
     Active Substance: CAPECITABINE
     Route: 048
  2. NUTROPIN AQ [Suspect]
     Active Substance: SOMATROPIN
     Indication: END STAGE RENAL DISEASE
  3. NUTROPIN AQ [Suspect]
     Active Substance: SOMATROPIN
     Indication: CHRONIC KIDNEY DISEASE
     Dosage: STRENGTH: 10 MG/2 ML, NUSPIN 10 PEN
     Route: 058
     Dates: start: 20180228

REACTIONS (1)
  - Death [Fatal]

NARRATIVE: CASE EVENT DATE: 20200701
